FAERS Safety Report 9970359 (Version 1)
Quarter: 2014Q1

REPORT INFORMATION
  Report Type: Spontaneous
  Country: US (occurrence: None)
  Receive Date: 20140304
  Receipt Date: 20140304
  Transmission Date: 20141002
  Serious: Yes (Death, Congenital Anomaly)
  Sender: FDA-Public Use
  Company Number: B0972583A

PATIENT
  Sex: Male

DRUGS (2)
  1. LAMOTRIGINE (FORMULATION UNKNOWN) (GENERIC) (LAMOTRIGINE) [Suspect]
     Indication: PRODUCT USED FOR UNKNOWN INDICATION
     Route: 064
  2. PHENYTOIN ( PHENYTOIN) [Suspect]
     Indication: PRODUCT USED FOR UNKNOWN INDICATION
     Route: 064

REACTIONS (4)
  - Hypoplastic left heart syndrome [None]
  - Post procedural complication [None]
  - Foetal anticonvulsant syndrome [None]
  - Maternal drugs affecting foetus [None]
